FAERS Safety Report 7383023-2 (Version None)
Quarter: 2011Q1

REPORT INFORMATION
  Report Type: 
  Country: None (occurrence: None)
  Receive Date: 20110330
  Receipt Date: 20110324
  Transmission Date: 20110831
  Serious: No
  Sender: FDA-Public Use
  Company Number: US-PFIZER INC-2009299292

PATIENT
  Sex: Female
  Weight: 79.4 kg

DRUGS (3)
  1. SOLU-MEDROL [Suspect]
     Dosage: 40 MG, 2X/WEEK
     Route: 030
  2. SOLU-MEDROL [Suspect]
     Indication: RHEUMATOID ARTHRITIS
     Dosage: 80 MG, 2X/WEEK
  3. SOLU-MEDROL [Suspect]
     Indication: CELLULITIS
     Dosage: 125 MG, 2 TIMES A WEEK
     Dates: start: 20090601

REACTIONS (9)
  - HEART RATE INCREASED [None]
  - MUSCULAR WEAKNESS [None]
  - INJECTION SITE PAIN [None]
  - PALPITATIONS [None]
  - DRUG EFFECT DELAYED [None]
  - DYSPNOEA [None]
  - FATIGUE [None]
  - SOMNOLENCE [None]
  - PAIN [None]
